FAERS Safety Report 23183580 (Version 4)
Quarter: 2024Q2

REPORT INFORMATION
  Report Type: Spontaneous
  Country: US (occurrence: US)
  Receive Date: 20231114
  Receipt Date: 20240502
  Transmission Date: 20240716
  Serious: No
  Sender: FDA-Public Use
  Company Number: US-PFIZER INC-PV202300181534

PATIENT
  Age: 49 Year
  Sex: Female
  Weight: 92.53 kg

DRUGS (2)
  1. XELJANZ XR [Suspect]
     Active Substance: TOFACITINIB CITRATE
     Indication: Rheumatoid arthritis
     Dosage: 11MG BY MOUTH ONCE A DAY
     Route: 048
  2. PREDNISONE [Concomitant]
     Active Substance: PREDNISONE
     Dosage: UNK, AS NEEDED
     Dates: start: 2021

REACTIONS (4)
  - Visual impairment [Unknown]
  - Sinus disorder [Unknown]
  - Headache [Unknown]
  - Skin discolouration [Unknown]

NARRATIVE: CASE EVENT DATE: 20231001
